FAERS Safety Report 10046716 (Version 2)
Quarter: 2015Q4

REPORT INFORMATION
  Report Type: Spontaneous
  Country: SE (occurrence: SE)
  Receive Date: 20140331
  Receipt Date: 20151009
  Transmission Date: 20160304
  Serious: Yes (Hospitalization, Other)
  Sender: FDA-Public Use
  Company Number: SE-009507513-1403SWE010687

PATIENT
  Age: 62 Year
  Sex: Female

DRUGS (16)
  1. LEVAXIN [Concomitant]
     Active Substance: LEVOTHYROXINE SODIUM
     Dosage: LEVAXIN 100 MICROGRAM, TAKEDA PHARMA AB
     Route: 048
  2. METHOTREXATE SODIUM. [Concomitant]
     Active Substance: METHOTREXATE SODIUM
     Dosage: METHOTREXATE ORION 2,5 MG, ORION CORPORATION, ORION PHARMA
     Route: 048
  3. FOLSYRE [Concomitant]
     Dosage: FOLSYRA EVOLAN 5 MG, BIOSYN ARZNEIMITTEL GMBH
     Route: 048
  4. PREDNISOLON [Concomitant]
     Active Substance: PREDNISOLONE
     Dosage: PREDNISOLON PFIZER 5 MG, PFIZER AB
     Route: 048
  5. CITALOPRAM [Concomitant]
     Active Substance: CITALOPRAM HYDROBROMIDE
     Dosage: CITALOPRAM BLUEFISH 40 MG, BLUEFISH PHARMACEUTICALS AB
     Route: 048
  6. TRAMADOL HEXAL [Concomitant]
     Active Substance: TRAMADOL
     Dosage: TRAMADOL HEXAL 50 MG, CAPSULE, HARD, HEXAL A/S
     Route: 048
  7. FOSAMAX [Suspect]
     Active Substance: ALENDRONATE SODIUM
     Dosage: 70 MG, QW; MERCK SHARP + DOHME BV
     Route: 048
     Dates: start: 2005, end: 2013
  8. NAPROXEN. [Concomitant]
     Active Substance: NAPROXEN
     Dosage: NAPROXEN BLUEFISH 500 MG, BLUEFISH PHARMACEUTICALS AB
     Route: 048
  9. CIPROFLOXACIN. [Concomitant]
     Active Substance: CIPROFLOXACIN
     Dosage: CIPROFLOXACIN ARROW 500 MG, ARROW LAKEMEDEL AB
     Route: 048
  10. ZOLPIDEM [Concomitant]
     Active Substance: ZOLPIDEM\ZOLPIDEM TARTRATE
     Dosage: ZOLPIDEM SANDOZ 5 MG, SANDOZ A/S
     Route: 048
  11. OXYCONTIN [Concomitant]
     Active Substance: OXYCODONE HYDROCHLORIDE
     Dosage: OXYCONTIN 10 MG, MUNDIPHARMA AB
     Route: 048
  12. PLAQUENIL [Concomitant]
     Active Substance: HYDROXYCHLOROQUINE SULFATE
     Dosage: PLAQUENIL 200 MG, SANOFI AB
     Route: 048
  13. PRIMPERAN [Concomitant]
     Active Substance: METOCLOPRAMIDE HYDROCHLORIDE
     Dosage: PRIMPERAN 20 MG, PARANOVA LAKEMEDEL AB
  14. CALCIUM SANDOZ (CALCIUM CARBONATE (+) CALCIUM LACTATE GLUCONATE) [Concomitant]
     Dosage: CALCIUM-SANDOZ 500 MG, SANDOZ A/S
  15. PAMOL F [Concomitant]
     Dosage: PAMOL 500 MG, TAKEDA PHARMA AB
  16. EDRONAX [Concomitant]
     Active Substance: REBOXETINE MESYLATE
     Dosage: EDRONAX 4 MG, ORIFARM AB
     Route: 048

REACTIONS (1)
  - Femur fracture [Unknown]

NARRATIVE: CASE EVENT DATE: 20130121
